FAERS Safety Report 5665181-0 (Version None)
Quarter: 2008Q1

REPORT INFORMATION
  Report Type: 
  Country: None (occurrence: None)
  Receive Date: 20080314
  Receipt Date: 20040118
  Transmission Date: 20080703
  Serious: No
  Sender: FDA-Public Use
  Company Number: US-ABBOTT-05P-163-0287068-00

PATIENT
  Sex: Female
  Weight: 70.37 kg

DRUGS (8)
  1. HUMIRA [Suspect]
     Indication: RHEUMATOID ARTHRITIS
     Route: 058
     Dates: start: 20041001
  2. HYDROXYCHLOROQUINE PHOSPHATE [Concomitant]
     Indication: RHEUMATOID ARTHRITIS
     Route: 048
  3. ASTEMIZOLE [Concomitant]
     Indication: RHEUMATOID ARTHRITIS
     Route: 048
  4. CITALOPRAM HYDROBROMIDE [Concomitant]
     Indication: RHEUMATOID ARTHRITIS
     Route: 048
  5. METHOTREXATE [Concomitant]
     Indication: RHEUMATOID ARTHRITIS
     Route: 048
  6. CALCIUM [Concomitant]
     Indication: RHEUMATOID ARTHRITIS
     Route: 048
  7. MAGNESIUM [Concomitant]
     Indication: RHEUMATOID ARTHRITIS
     Route: 048
  8. VICODIN [Concomitant]
     Indication: MYALGIA
     Route: 048

REACTIONS (5)
  - HYPOAESTHESIA [None]
  - MOOD SWINGS [None]
  - MYALGIA [None]
  - NIGHT SWEATS [None]
  - PARAESTHESIA [None]
